FAERS Safety Report 7900880-9 (Version None)
Quarter: 2011Q4

REPORT INFORMATION
  Report Type: 
  Country: None (occurrence: None)
  Receive Date: 20111104
  Receipt Date: 20111027
  Transmission Date: 20120403
  Serious: Yes (Hospitalization, Other)
  Sender: FDA-Public Use
  Company Number: AUR-APL-2011-05663

PATIENT

DRUGS (1)
  1. LAMOTRIGINE [Suspect]
     Indication: PRODUCT USED FOR UNKNOWN INDICATION

REACTIONS (11)
  - VENTRICULAR FIBRILLATION [None]
  - POISONING [None]
  - VENTRICULAR ARRHYTHMIA [None]
  - RHABDOMYOLYSIS [None]
  - HYPOKALAEMIA [None]
  - RESPIRATORY DEPRESSION [None]
  - EPILEPSY [None]
  - CARDIOGENIC SHOCK [None]
  - SUICIDE ATTEMPT [None]
  - COMA [None]
  - ATRIOVENTRICULAR BLOCK [None]
